FAERS Safety Report 8229282-5 (Version None)
Quarter: 2012Q1

REPORT INFORMATION
  Report Type: 
  Country: None (occurrence: None)
  Receive Date: 20120322
  Receipt Date: 20120314
  Transmission Date: 20120608
  Serious: Yes (Hospitalization)
  Sender: FDA-Public Use
  Company Number: DE-UCBSA-043203

PATIENT
  Age: 52 Year
  Sex: Female
  Weight: 98 kg

DRUGS (5)
  1. NEUPRO [Suspect]
     Dosage: UNKNOWN DOSE
     Route: 062
     Dates: start: 20080101
  2. NEUPRO [Suspect]
     Indication: PARKINSON'S DISEASE
     Dosage: 2 MG+8 MG DAILY
     Route: 062
     Dates: start: 20110501
  3. AZILECT [Concomitant]
     Indication: PARKINSON'S DISEASE
     Dates: start: 20090101
  4. NEUPRO [Suspect]
     Dosage: INCREASED OVER THE COURSE OF THREE YEARS
     Route: 062
  5. AMANTADINE HCL [Suspect]
     Dates: start: 20080101, end: 20110501

REACTIONS (3)
  - DRUG INEFFECTIVE [None]
  - PARKINSON'S DISEASE [None]
  - MALAISE [None]
